FAERS Safety Report 10700062 (Version 1)
Quarter: 2015Q1

REPORT INFORMATION
  Report Type: Spontaneous
  Country: CA (occurrence: CA)
  Receive Date: 20150109
  Receipt Date: 20150109
  Transmission Date: 20150721
  Serious: Yes (Other)
  Sender: FDA-Public Use
  Company Number: CA-BAYER-2015-002811

PATIENT
  Age: 26 Year
  Sex: Female
  Weight: 59 kg

DRUGS (1)
  1. MIRENA [Suspect]
     Active Substance: LEVONORGESTREL
     Dosage: 20 MCG/24HR, CONT
     Route: 015

REACTIONS (3)
  - Benign breast neoplasm [Recovered/Resolved]
  - Condition aggravated [Recovered/Resolved]
  - Alopecia [Recovered/Resolved]
